FAERS Safety Report 21087029 (Version 1)
Quarter: 2022Q3

REPORT INFORMATION
  Report Type: Spontaneous
  Country: US (occurrence: None)
  Receive Date: 20220714
  Receipt Date: 20220714
  Transmission Date: 20221027
  Serious: Yes (Hospitalization)
  Sender: FDA-Public Use
  Company Number: None

PATIENT
  Age: 22 Year
  Sex: Female
  Weight: 56.9 kg

DRUGS (1)
  1. VENETOCLAX [Suspect]
     Active Substance: VENETOCLAX
     Dosage: FREQUENCY : DAILY;?
     Route: 048
     Dates: start: 20220629

REACTIONS (6)
  - Febrile neutropenia [None]
  - Proctalgia [None]
  - Chills [None]
  - Nausea [None]
  - Contusion [None]
  - Bacterial infection [None]

NARRATIVE: CASE EVENT DATE: 20220712
